FAERS Safety Report 24918373 (Version 5)
Quarter: 2025Q1

REPORT INFORMATION
  Report Type: Spontaneous
  Country: AR (occurrence: AR)
  Receive Date: 20250203
  Receipt Date: 20250328
  Transmission Date: 20250409
  Serious: No
  Sender: PFIZER
  Company Number: AR-PFIZER INC-202500020278

PATIENT
  Age: 56 Year
  Sex: Female

DRUGS (1)
  1. ENBREL [Suspect]
     Active Substance: ETANERCEPT
     Indication: Rheumatoid arthritis
     Dosage: 50 MG, WEEKLY
     Dates: start: 20211101, end: 20250104

REACTIONS (3)
  - Device malfunction [Unknown]
  - Device use issue [Unknown]
  - Drug dose omission by device [Unknown]

NARRATIVE: CASE EVENT DATE: 20250104
